FAERS Safety Report 18959188 (Version 2)
Quarter: 2021Q3

REPORT INFORMATION
  Report Type: Report from Study
  Country: US (occurrence: US)
  Receive Date: 20210302
  Receipt Date: 20210914
  Transmission Date: 20211014
  Serious: No
  Sender: FDA-Public Use
  Company Number: US-TAKEDA-2021TUS013152

PATIENT
  Sex: Male
  Weight: 70 kg

DRUGS (10)
  1. SODIUM CHLORIDE. [Concomitant]
     Active Substance: SODIUM CHLORIDE
  2. ASPIRIN EC [Concomitant]
     Active Substance: ASPIRIN
  3. LIDOCAINE. [Concomitant]
     Active Substance: LIDOCAINE
  4. HUMAN IMMUNOGLOBULIN; HYALURONIDASE [Suspect]
     Active Substance: HUMAN IMMUNOGLOBULIN G\HYALURONIDASE RECOMBINANT HUMAN
     Dosage: 40 GRAM, Q4WEEKS
     Route: 058
     Dates: start: 20160922
  5. EPINEPHRINE. [Concomitant]
     Active Substance: EPINEPHRINE
  6. NORMAL SALINE [Concomitant]
     Active Substance: SODIUM CHLORIDE
  7. DIPHENHYDRAMINE. [Concomitant]
     Active Substance: DIPHENHYDRAMINE
  8. PROBIOTIC [BIFIDOBACTERIUM LACTIS] [Concomitant]
     Active Substance: BIFIDOBACTERIUM ANIMALIS LACTIS
  9. ACETAMINOPHEN. [Concomitant]
     Active Substance: ACETAMINOPHEN
  10. HUMAN IMMUNOGLOBULIN; HYALURONIDASE [Suspect]
     Active Substance: HUMAN IMMUNOGLOBULIN G\HYALURONIDASE RECOMBINANT HUMAN
     Indication: CONGENITAL HYPOGAMMAGLOBULINAEMIA
     Dosage: 40 GRAM, Q4WEEKS
     Route: 058
     Dates: start: 20210822

REACTIONS (3)
  - Inappropriate schedule of product administration [Unknown]
  - Insurance issue [Unknown]
  - Hypersensitivity [Unknown]
